FAERS Safety Report 4475416-8 (Version None)
Quarter: 2004Q4

REPORT INFORMATION
  Report Type: 
  Country: None (occurrence: None)
  Receive Date: 20041014
  Receipt Date: 20041014
  Transmission Date: 20050328
  Serious: Yes (Other)
  Sender: FDA-Public Use
  Company Number: None

PATIENT
  Age: 50 Year
  Sex: Male
  Weight: 122.4712 kg

DRUGS (1)
  1. FLUORIDEX  0.63 % DISCUS DENTAL INC. [Suspect]
     Dosage: 1/8 OZ ML ONOPHARING

REACTIONS (1)
  - MEDICATION ERROR [None]
